FAERS Safety Report 6242369-1 (Version None)
Quarter: 2009Q2

REPORT INFORMATION
  Report Type: 
  Country: None (occurrence: None)
  Receive Date: 20090622
  Receipt Date: 20090622
  Transmission Date: 20091009
  Serious: No
  Sender: FDA-Public Use
  Company Number: None

PATIENT
  Sex: Female
  Weight: 102.0593 kg

DRUGS (2)
  1. ZICAM COLD REMEDY NASAL GEL [Suspect]
     Indication: PROPHYLAXIS
     Dosage: 1 PUMP EVERY 4 HOURS NASAL 3-4 DAYS
     Route: 045
  2. ZICAM COLD REMEDY NASAL SWABS [Suspect]
     Indication: PROPHYLAXIS
     Dosage: 1 SWAB EVERY 4 HOURS NASAL 3-4 DAYS
     Route: 045

REACTIONS (1)
  - HYPOSMIA [None]
